FAERS Safety Report 7377879-7 (Version None)
Quarter: 2011Q1

REPORT INFORMATION
  Report Type: 
  Country: None (occurrence: None)
  Receive Date: 20110328
  Receipt Date: 20110317
  Transmission Date: 20110831
  Serious: Yes (Congenital Anomaly, Other)
  Sender: FDA-Public Use
  Company Number: BR-NOVOPROD-325509

PATIENT

DRUGS (2)
  1. ACTRAPID [Suspect]
     Indication: DIABETES MELLITUS
     Route: 064
  2. PROTHAPHANE [Suspect]
     Indication: DIABETES MELLITUS
     Route: 064

REACTIONS (12)
  - NEONATAL RESPIRATORY DISTRESS SYNDROME [None]
  - CONGENITAL MUSCULOSKELETAL ANOMALY [None]
  - DUODENAL ATRESIA [None]
  - CONGENITAL DIAPHRAGMATIC HERNIA [None]
  - CARDIAC DISORDER [None]
  - GASTROSCHISIS [None]
  - FOETAL DISTRESS SYNDROME [None]
  - MACROSOMIA [None]
  - EXOMPHALOS [None]
  - SHOULDER DYSTOCIA [None]
  - HYPOGLYCAEMIA NEONATAL [None]
  - JAUNDICE [None]
